FAERS Safety Report 5147003-X (Version None)
Quarter: 2006Q4

REPORT INFORMATION
  Report Type: 
  Country: None (occurrence: None)
  Receive Date: 20061103
  Receipt Date: 20061026
  Transmission Date: 20070319
  Serious: Yes (Life-Threatening)
  Sender: FDA-Public Use
  Company Number: FABR-11560

PATIENT
  Age: 44 Year
  Sex: Male
  Weight: 70 kg

DRUGS (5)
  1. FABRAZYME [Suspect]
     Indication: FABRY'S DISEASE
     Dosage: 1 MG/KG Q2WKS IV
     Route: 042
     Dates: start: 20060828
  2. FABRAZYME [Suspect]
     Indication: FABRY'S DISEASE
     Dosage: 70 MG Q2WKS IV
     Route: 042
     Dates: start: 20051107
  3. ENALAPRIL MALEATE [Concomitant]
  4. CARBAMAZEPINE [Concomitant]
  5. GABAPENTIN [Concomitant]

REACTIONS (9)
  - CHILLS [None]
  - COUGH [None]
  - DRY MOUTH [None]
  - DYSPNOEA [None]
  - HYPERHIDROSIS [None]
  - INFUSION RELATED REACTION [None]
  - TACHYCARDIA [None]
  - TREMOR [None]
  - WHEEZING [None]
